FAERS Safety Report 21374515 (Version 1)
Quarter: 2022Q3

REPORT INFORMATION
  Report Type: Spontaneous
  Country: FR (occurrence: FR)
  Receive Date: 20220926
  Receipt Date: 20220926
  Transmission Date: 20221027
  Serious: Yes (Hospitalization)
  Sender: FDA-Public Use
  Company Number: None

PATIENT
  Age: 58 Year
  Sex: Male

DRUGS (7)
  1. KETOPROFEN [Suspect]
     Active Substance: KETOPROFEN
     Indication: Sciatica
     Dosage: 100 MG, Q12H
     Route: 048
     Dates: start: 20220812, end: 20220824
  2. PANTOPRAZOLE [Suspect]
     Active Substance: PANTOPRAZOLE
     Indication: Prophylaxis against gastrointestinal ulcer
     Dosage: 20 MG, QD
     Route: 048
     Dates: start: 20220812, end: 20220824
  3. LOVENOX [Suspect]
     Active Substance: ENOXAPARIN SODIUM
     Indication: Thrombosis prophylaxis
     Dosage: 4000 IU, QD
     Route: 058
     Dates: start: 20220812, end: 20220817
  4. CODEINE [Suspect]
     Active Substance: CODEINE
     Indication: Sciatica
     Dosage: 60 MG, Q8H
     Route: 048
     Dates: start: 20220817, end: 20220828
  5. METHYLPREDNISOLONE [Suspect]
     Active Substance: METHYLPREDNISOLONE
     Indication: Sciatica
     Dosage: 120 MG, QD
     Route: 042
     Dates: start: 20220816, end: 20220817
  6. POLYETHYLENE GLYCOLS [Suspect]
     Active Substance: POLYETHYLENE GLYCOLS
     Indication: Constipation
     Dosage: 1 DOSAGE FORM, QD
     Route: 048
     Dates: start: 20220812, end: 20220817
  7. PREDNISONE [Suspect]
     Active Substance: PREDNISONE
     Indication: Sciatica
     Dosage: 1 DOSAGE FORM, ONCE/SINGLE
     Route: 024
     Dates: start: 20220902, end: 20220902

REACTIONS (1)
  - Vascular purpura [Recovering/Resolving]

NARRATIVE: CASE EVENT DATE: 20220903
